FAERS Safety Report 15408219 (Version 1)
Quarter: 2018Q3

REPORT INFORMATION
  Report Type: Spontaneous
  Country: FR (occurrence: FR)
  Receive Date: 20180920
  Receipt Date: 20180920
  Transmission Date: 20181010
  Serious: Yes (Hospitalization)
  Sender: FDA-Public Use
  Company Number: FR-009507513-1809FRA003488

PATIENT
  Age: 75 Year
  Sex: Male
  Weight: 70 kg

DRUGS (3)
  1. TYGACIL [Suspect]
     Active Substance: TIGECYCLINE
     Indication: INFECTION
     Dosage: 200 MG, QD
     Route: 042
     Dates: start: 20180809, end: 20180816
  2. COLIMYCINE (COLISTIMETHATE SODIUM) [Suspect]
     Active Substance: COLISTIMETHATE SODIUM
     Dosage: 9 MILLION IU, QD
     Route: 042
     Dates: start: 20180806
  3. INVANZ [Suspect]
     Active Substance: ERTAPENEM SODIUM
     Indication: INFECTION
     Dosage: 1000 MG, QD
     Route: 042
     Dates: start: 20180806, end: 20180816

REACTIONS (3)
  - Coagulation factor decreased [Recovering/Resolving]
  - Prothrombin time ratio decreased [Recovering/Resolving]
  - Activated partial thromboplastin time prolonged [Recovering/Resolving]

NARRATIVE: CASE EVENT DATE: 20180813
